FAERS Safety Report 25499868 (Version 2)
Quarter: 2025Q3

REPORT INFORMATION
  Report Type: Report from Study
  Country: CA (occurrence: CA)
  Receive Date: 20250701
  Receipt Date: 20250708
  Transmission Date: 20251020
  Serious: Yes (Hospitalization)
  Sender: ABBVIE
  Company Number: CA-ABBVIE-6348814

PATIENT
  Age: 56 Year
  Sex: Female
  Weight: 152.1 kg

DRUGS (1)
  1. SKYRIZI [Suspect]
     Active Substance: RISANKIZUMAB-RZAA
     Indication: Crohn^s disease
     Route: 058

REACTIONS (2)
  - Respiratory disorder [Unknown]
  - Weight decreased [Unknown]

NARRATIVE: CASE EVENT DATE: 20250101
